FAERS Safety Report 9815723 (Version 1)
Quarter: 2014Q1

REPORT INFORMATION
  Report Type: Spontaneous
  Country: US (occurrence: US)
  Receive Date: 20140114
  Receipt Date: 20140114
  Transmission Date: 20141002
  Serious: Yes (Other)
  Sender: FDA-Public Use
  Company Number: PHEH2014US000853

PATIENT
  Sex: Female

DRUGS (1)
  1. SANDOSTATIN LAR DEPOT [Suspect]
     Dosage: UNK UKN, UNK

REACTIONS (12)
  - Dry skin [Unknown]
  - Hair texture abnormal [Unknown]
  - Weight increased [Unknown]
  - Apathy [Unknown]
  - Fatigue [Unknown]
  - Alopecia [Unknown]
  - Hyperthyroidism [Unknown]
  - Depression [Unknown]
  - Blood cholesterol increased [Unknown]
  - Feeling abnormal [Unknown]
  - Nail injury [Unknown]
  - Nail ridging [Unknown]
